FAERS Safety Report 10079859 (Version 2)
Quarter: 2014Q2

REPORT INFORMATION
  Report Type: Report from Study
  Country: US (occurrence: US)
  Receive Date: 20140415
  Receipt Date: 20140421
  Transmission Date: 20141212
  Serious: Yes (Life-Threatening)
  Sender: FDA-Public Use
  Company Number: US-US-EMD SERONO, INC.-7282555

PATIENT
  Age: 43 Year
  Sex: Female

DRUGS (2)
  1. REBIF [Suspect]
     Indication: PRODUCT USED FOR UNKNOWN INDICATION
     Route: 058
     Dates: start: 20130816
  2. VALIUM                             /00017001/ [Concomitant]
     Indication: PRODUCT USED FOR UNKNOWN INDICATION

REACTIONS (10)
  - Blood triglycerides increased [Not Recovered/Not Resolved]
  - Blood cholesterol increased [Unknown]
  - High density lipoprotein increased [Unknown]
  - Protein urine present [Recovered/Resolved]
  - Presyncope [Recovered/Resolved]
  - Rhinorrhoea [Unknown]
  - Limb discomfort [Recovering/Resolving]
  - Night sweats [Not Recovered/Not Resolved]
  - Neck pain [Recovering/Resolving]
  - Headache [Not Recovered/Not Resolved]
